FAERS Safety Report 21459227 (Version 2)
Quarter: 2022Q4

REPORT INFORMATION
  Report Type: Other
  Country: None (occurrence: US)
  Receive Date: 20221014
  Receipt Date: 20221021
  Transmission Date: 20230113
  Serious: Yes (Other)
  Sender: FDA-Public Use
  Company Number: US-Ascent Pharmaceuticals, Inc.-2133862

PATIENT
  Age: 25 Year
  Sex: Female
  Weight: 44.091 kg

DRUGS (1)
  1. DEXTROAMPHET SACCHARAT, AMPHET ASPARTATE, DEXTROAMPHET SULFATE AND AMP [Suspect]
     Active Substance: AMPHETAMINE ASPARTATE\AMPHETAMINE SULFATE\DEXTROAMPHETAMINE SACCHARATE\DEXTROAMPHETAMINE SULFATE
     Indication: Product used for unknown indication
     Route: 048

REACTIONS (12)
  - Loss of consciousness [Unknown]
  - Suicidal ideation [Unknown]
  - Rash [Unknown]
  - Panic attack [Unknown]
  - Mood swings [Unknown]
  - Anger [Unknown]
  - Disturbance in attention [Unknown]
  - Somnolence [Unknown]
  - Product quality issue [Unknown]
  - Product substitution issue [Unknown]
  - Depression [Recovered/Resolved]
  - Asthenia [Recovered/Resolved]
